FAERS Safety Report 8822316 (Version 1)
Quarter: 2012Q4

REPORT INFORMATION
  Report Type: 
  Country: US (occurrence: US)
  Receive Date: 20121003
  Receipt Date: 20121003
  Transmission Date: 20130627
  Serious: Yes (Hospitalization)
  Sender: FDA-Public Use
  Company Number: US-BAYER-2012-100695

PATIENT
  Age: 51 Year
  Sex: Female

DRUGS (14)
  1. YAZ [Suspect]
  2. LEVAQUIN [Concomitant]
     Indication: URINARY TRACT INFECTION
  3. BACTRIM [Concomitant]
     Dosage: UNK
     Dates: start: 20070718
  4. LISINOPRIL [Concomitant]
  5. ACETAMINOPHEN [Concomitant]
  6. GLUCOPHAGE [Concomitant]
  7. GLUCOTROL XL [Concomitant]
  8. LANTUS [Concomitant]
  9. LIPITOR [Concomitant]
  10. NOVOLOG [Concomitant]
  11. PHENERGAN [Concomitant]
  12. PRILOSEC [Concomitant]
  13. PROVERA [Concomitant]
  14. FLONASE [Concomitant]

REACTIONS (2)
  - Pulmonary embolism [Recovered/Resolved]
  - Cholecystitis chronic [None]
